FAERS Safety Report 7593011-9 (Version None)
Quarter: 2011Q3

REPORT INFORMATION
  Report Type: 
  Country: None (occurrence: None)
  Receive Date: 20110706
  Receipt Date: 20110628
  Transmission Date: 20111222
  Serious: Yes (Other)
  Sender: FDA-Public Use
  Company Number: GB-GLAXOSMITHKLINE-B0729784A

PATIENT
  Age: 56 Year

DRUGS (2)
  1. SERETIDE [Suspect]
     Indication: ASTHMA
     Route: 055
  2. ALBUTEROL SULFATE AUTOHALER [Suspect]
     Indication: ASTHMA
     Route: 065

REACTIONS (2)
  - ASTHMA [None]
  - BACTERIAL INFECTION [None]
